FAERS Safety Report 5740654-0 (Version None)
Quarter: 2008Q2

REPORT INFORMATION
  Report Type: 
  Country: None (occurrence: None)
  Receive Date: 20080516
  Receipt Date: 20080513
  Transmission Date: 20081010
  Serious: Yes (Other)
  Sender: FDA-Public Use
  Company Number: B0520451A

PATIENT
  Age: 20 Year
  Sex: Male

DRUGS (1)
  1. AUGMENTIN '125' [Suspect]
     Dosage: 2000MG PER DAY
     Route: 048
     Dates: start: 20080325, end: 20080330

REACTIONS (1)
  - GASTROENTERITIS [None]
